FAERS Safety Report 25827765 (Version 1)
Quarter: 2025Q3

REPORT INFORMATION
  Report Type: Spontaneous
  Country: CO (occurrence: CO)
  Receive Date: 20250921
  Receipt Date: 20250921
  Transmission Date: 20251021
  Serious: Yes (Hospitalization, Other)
  Sender: SANOFI AVENTIS
  Company Number: CO-SA-2025SA279551

PATIENT
  Age: 31 Year
  Sex: Female
  Weight: 53 kg

DRUGS (1)
  1. DUPIXENT [Suspect]
     Active Substance: DUPILUMAB
     Indication: Dermatitis atopic
     Dosage: 300 MG, QOW
     Route: 058
     Dates: start: 2022

REACTIONS (4)
  - Lung neoplasm malignant [Unknown]
  - Cough [Unknown]
  - Vomiting [Unknown]
  - Dyspnoea [Unknown]

NARRATIVE: CASE EVENT DATE: 20250827
